FAERS Safety Report 10255628 (Version 1)
Quarter: 2014Q2

REPORT INFORMATION
  Report Type: Spontaneous
  Country: US (occurrence: None)
  Receive Date: 20140620
  Receipt Date: 20140620
  Transmission Date: 20141212
  Serious: Yes (Hospitalization)
  Sender: FDA-Public Use
  Company Number: SYM-2014-22225

PATIENT
  Age: 72 Year
  Sex: Male

DRUGS (1)
  1. XENAZINE [Suspect]
     Indication: HUNTINGTON^S DISEASE
     Route: 048
     Dates: start: 201111

REACTIONS (4)
  - Fall [None]
  - Loss of consciousness [None]
  - Orthostatic hypotension [None]
  - Blood pressure decreased [None]
